FAERS Safety Report 7300763-1 (Version None)
Quarter: 2011Q1

REPORT INFORMATION
  Report Type: 
  Country: None (occurrence: None)
  Receive Date: 20110103
  Receipt Date: 20081201
  Transmission Date: 20110831
  Serious: Yes (Other)
  Sender: FDA-Public Use
  Company Number: US-002232

PATIENT
  Age: 34 Year
  Sex: Male
  Weight: 80.9 kg

DRUGS (2)
  1. MULTIHANCE [Suspect]
     Indication: CHOLESTEATOMA
     Dosage: 15ML INTRAVENOUS
     Route: 042
     Dates: start: 20081129, end: 20081129
  2. MULTIHANCE [Suspect]
     Indication: NUCLEAR MAGNETIC RESONANCE IMAGING
     Dosage: 15ML INTRAVENOUS
     Route: 042
     Dates: start: 20081129, end: 20081129

REACTIONS (2)
  - PRESYNCOPE [None]
  - HYPERSENSITIVITY [None]
